FAERS Safety Report 11129232 (Version 1)
Quarter: 2015Q2

REPORT INFORMATION
  Report Type: Spontaneous
  Country: US (occurrence: US)
  Receive Date: 20150521
  Receipt Date: 20150521
  Transmission Date: 20150821
  Serious: No
  Sender: FDA-Public Use
  Company Number: US-PFIZER INC-2015165746

PATIENT
  Sex: Female

DRUGS (2)
  1. IRON [Suspect]
     Active Substance: IRON
  2. AZITHROMYCIN [Suspect]
     Active Substance: AZITHROMYCIN ANHYDROUS
     Indication: ALOPECIA
     Dosage: UNK

REACTIONS (8)
  - Faeces discoloured [Unknown]
  - Decreased appetite [Unknown]
  - Diarrhoea [Unknown]
  - Condition aggravated [Unknown]
  - Depression [Unknown]
  - Abdominal pain lower [Unknown]
  - Constipation [Unknown]
  - Flatulence [Unknown]
